FAERS Safety Report 6127932-0 (Version None)
Quarter: 2009Q1

REPORT INFORMATION
  Report Type: 
  Country: None (occurrence: None)
  Receive Date: 20090323
  Receipt Date: 20090318
  Transmission Date: 20090719
  Serious: Yes (Life-Threatening, Other)
  Sender: FDA-Public Use
  Company Number: FR-ASTRAZENECA-2009CG00558

PATIENT
  Age: 18102 Day
  Sex: Female
  Weight: 74 kg

DRUGS (1)
  1. TAMOXIFEN CITRATE [Suspect]
     Indication: BREAST CANCER FEMALE
     Route: 048
     Dates: start: 20080809, end: 20081017

REACTIONS (5)
  - BREAST OPERATION [None]
  - ENDOMETRIAL HYPERPLASIA [None]
  - MENOMETRORRHAGIA [None]
  - OVARIAN CYST [None]
  - UTERINE POLYP [None]
